FAERS Safety Report 19060055 (Version 2)
Quarter: 2022Q1

REPORT INFORMATION
  Report Type: Spontaneous
  Country: FR (occurrence: FR)
  Receive Date: 20210326
  Receipt Date: 20220106
  Transmission Date: 20220423
  Serious: Yes (Other)
  Sender: FDA-Public Use
  Company Number: FR-SUN PHARMACEUTICAL INDUSTRIES LTD-2021RR-287899

PATIENT
  Age: 49 Year
  Sex: Male
  Weight: 88 kg

DRUGS (11)
  1. ACETAMINOPHEN [Suspect]
     Active Substance: ACETAMINOPHEN
     Indication: Pain
     Dosage: VARIABLE ()
     Route: 065
     Dates: start: 20210127, end: 20210131
  2. PROPOFOL [Suspect]
     Active Substance: PROPOFOL
     Indication: Sedation
     Dosage: VARIABLE ()
     Route: 042
     Dates: start: 20210129, end: 20210201
  3. PRIMPERAN [Suspect]
     Active Substance: METOCLOPRAMIDE HYDROCHLORIDE
     Indication: Nausea
     Dosage: VARIABLE ()
     Route: 065
     Dates: start: 20210129, end: 20210203
  4. FENTANYL [Suspect]
     Active Substance: FENTANYL
     Indication: Sedation
     Dosage: VARIABLE ()
     Route: 042
     Dates: start: 20210128, end: 20210201
  5. ONDANSETRON [Suspect]
     Active Substance: ONDANSETRON
     Indication: Nausea
     Dosage: VARIABLE ()
     Route: 065
     Dates: start: 20210128, end: 20210203
  6. ACUPAN [Suspect]
     Active Substance: NEFOPAM HYDROCHLORIDE
     Indication: Pain
     Dosage: VARIABLE ()
     Route: 065
     Dates: start: 20210127, end: 20210131
  7. CLINDAMYCIN HYDROCHLORIDE [Concomitant]
     Active Substance: CLINDAMYCIN HYDROCHLORIDE
     Indication: Antibiotic therapy
     Dosage: 2.4 GRAM, VARIABLE
     Route: 042
     Dates: start: 20210128
  8. AUGMENTIN [Concomitant]
     Active Substance: AMOXICILLIN\CLAVULANATE POTASSIUM
     Indication: Antibiotic therapy
     Dosage: 6 GRAM, DAILY
     Route: 042
     Dates: start: 20210128, end: 20210201
  9. LOVENOX [Concomitant]
     Active Substance: ENOXAPARIN SODIUM
     Indication: Product used for unknown indication
     Dosage: 1 DOSAGE FORM
     Route: 058
     Dates: start: 20210128
  10. NOREPINEPHRINE [Concomitant]
     Active Substance: NOREPINEPHRINE
     Indication: Hypotension
     Dosage: VARIABLE ()
     Route: 042
     Dates: start: 20210128, end: 20210129
  11. MORPHINE [Concomitant]
     Active Substance: MORPHINE
     Indication: Pain
     Dosage: VARIABLE ()
     Route: 042
     Dates: start: 20210127, end: 20210128

REACTIONS (1)
  - Hepatic cytolysis [Recovering/Resolving]

NARRATIVE: CASE EVENT DATE: 20210202
